FAERS Safety Report 18960431 (Version 1)
Quarter: 2021Q1

REPORT INFORMATION
  Report Type: Spontaneous
  Country: US (occurrence: US)
  Receive Date: 20210302
  Receipt Date: 20210302
  Transmission Date: 20210420
  Serious: No
  Sender: FDA-Public Use
  Company Number: US-BAYER-2021-090198

PATIENT
  Age: 40 Year
  Sex: Female

DRUGS (1)
  1. GADAVIST [Suspect]
     Active Substance: GADOBUTROL
     Indication: MAGNETIC RESONANCE IMAGING BRAIN
     Dosage: 6.5 ML, ONCE
     Dates: start: 20210216, end: 20210216

REACTIONS (4)
  - Skin warm [None]
  - Burning sensation [Not Recovered/Not Resolved]
  - Pyrexia [Recovered/Resolved]
  - Tremor [None]

NARRATIVE: CASE EVENT DATE: 20210216
